FAERS Safety Report 6281450-8 (Version None)
Quarter: 2009Q3

REPORT INFORMATION
  Report Type: 
  Country: None (occurrence: None)
  Receive Date: 20090724
  Receipt Date: 20090720
  Transmission Date: 20100115
  Serious: Yes (Hospitalization)
  Sender: FDA-Public Use
  Company Number: AU-BRISTOL-MYERS SQUIBB COMPANY-14709141

PATIENT
  Age: 71 Year
  Sex: Female

DRUGS (8)
  1. PRAVASTATIN SODIUM [Suspect]
     Indication: METABOLIC DISORDER
     Dates: end: 20080112
  2. CIPROFLOXACIN [Suspect]
     Indication: URINARY TRACT DISORDER
     Dates: end: 20080111
  3. PROGOUT [Suspect]
     Indication: GOUT
     Dates: end: 20080111
  4. GLYCERYL TRINITRATE [Concomitant]
  5. LERCANIDIPINE [Concomitant]
  6. METOPROLOL TARTRATE [Concomitant]
  7. ACETAMINOPHEN W/ CODEINE [Concomitant]
  8. SYMBICORT [Concomitant]
     Dosage: 1 DF= 400/12(UNIT NOT SPECIFIED).SYMBICORT TURBUHALER

REACTIONS (3)
  - ACIDOSIS [None]
  - RENAL FAILURE ACUTE [None]
  - TUBULOINTERSTITIAL NEPHRITIS [None]
